FAERS Safety Report 16746257 (Version 1)
Quarter: 2019Q3

REPORT INFORMATION
  Report Type: Spontaneous
  Country: US (occurrence: US)
  Receive Date: 20190827
  Receipt Date: 20190827
  Transmission Date: 20191005
  Serious: No
  Sender: FDA-Public Use
  Company Number: US-ABBVIE-19K-163-2699750-00

PATIENT
  Age: 57 Year
  Sex: Female

DRUGS (2)
  1. MAVYRET [Suspect]
     Active Substance: GLECAPREVIR\PIBRENTASVIR
     Indication: HEPATITIS C
     Route: 048
     Dates: start: 201902
  2. TRAMADOL. [Concomitant]
     Active Substance: TRAMADOL
     Indication: GUN SHOT WOUND

REACTIONS (2)
  - Rash generalised [Not Recovered/Not Resolved]
  - Psoriasis [Unknown]

NARRATIVE: CASE EVENT DATE: 201902
